FAERS Safety Report 20092909 (Version 1)
Quarter: 2021Q4

REPORT INFORMATION
  Report Type: Spontaneous
  Country: JP (occurrence: JP)
  Receive Date: 20211120
  Receipt Date: 20211120
  Transmission Date: 20220304
  Serious: Yes (Life-Threatening, Hospitalization, Other)
  Sender: FDA-Public Use
  Company Number: JP-MLMSERVICE-20211104-3209601-1

PATIENT
  Sex: Male

DRUGS (3)
  1. METHOTREXATE [Suspect]
     Active Substance: METHOTREXATE
     Indication: Systemic lupus erythematosus
  2. TACROLIMUS [Suspect]
     Active Substance: TACROLIMUS
     Indication: Systemic lupus erythematosus
  3. PREDNISOLONE [Suspect]
     Active Substance: PREDNISOLONE
     Indication: Systemic lupus erythematosus

REACTIONS (11)
  - Acute kidney injury [Recovering/Resolving]
  - Urinary tract infection [Unknown]
  - Osteomyelitis [Unknown]
  - Aortic aneurysm [Recovering/Resolving]
  - Thrombosis [Recovering/Resolving]
  - Intervertebral discitis [Recovering/Resolving]
  - Cytomegalovirus gastrointestinal ulcer [Unknown]
  - Sepsis [Recovering/Resolving]
  - Septic shock [Recovering/Resolving]
  - Muscle abscess [Recovering/Resolving]
  - Staphylococcal infection [Recovered/Resolved]
